FAERS Safety Report 6842911-3 (Version None)
Quarter: 2010Q3

REPORT INFORMATION
  Report Type: 
  Country: None (occurrence: None)
  Receive Date: 20100714
  Receipt Date: 20070808
  Transmission Date: 20110219
  Serious: No
  Sender: FDA-Public Use
  Company Number: US-PFIZER INC-2007067252

PATIENT
  Sex: Male
  Weight: 104.3 kg

DRUGS (2)
  1. CHANTIX [Suspect]
     Indication: SMOKING CESSATION THERAPY
     Dates: start: 20070731
  2. METHADONE HCL [Concomitant]

REACTIONS (4)
  - ASTHENIA [None]
  - EAR DISCOMFORT [None]
  - NAUSEA [None]
  - VOMITING [None]
